FAERS Safety Report 7030251-1 (Version None)
Quarter: 2010Q4

REPORT INFORMATION
  Report Type: 
  Country: None (occurrence: None)
  Receive Date: 20101001
  Receipt Date: 20100922
  Transmission Date: 20110411
  Serious: Yes (Hospitalization)
  Sender: FDA-Public Use
  Company Number: 2010US003896

PATIENT
  Age: 57 Year
  Sex: Male
  Weight: 71 kg

DRUGS (12)
  1. PROGRAF [Suspect]
     Indication: RENAL TRANSPLANT
     Dosage: 9 MG, UID/QD, ORAL
     Route: 048
     Dates: start: 20030927, end: 20100101
  2. ASPIRIN [Concomitant]
  3. ZETIA [Concomitant]
  4. MAGNESIUM (MAGNESIUM) [Concomitant]
  5. LABETALOL HCL [Concomitant]
  6. VERAPAMIL [Concomitant]
  7. TRICOR [Concomitant]
  8. CARDURA [Concomitant]
  9. CELLCEPT (MYCOPHENOLDATE MOFETIL) [Concomitant]
  10. LIPITOR [Concomitant]
  11. PEPCID (MAGNESIUM TRISILICATE, SODIUM BICARBONATE) [Concomitant]
  12. PREDNISONE TAB [Concomitant]

REACTIONS (5)
  - ACCIDENT [None]
  - BLINDNESS [None]
  - BLOOD CREATININE INCREASED [None]
  - BLOOD UREA INCREASED [None]
  - INJURY [None]
